FAERS Safety Report 7318691-4 (Version None)
Quarter: 2011Q1

REPORT INFORMATION
  Report Type: 
  Country: None (occurrence: None)
  Receive Date: 20110228
  Receipt Date: 20110218
  Transmission Date: 20110831
  Serious: Yes (Hospitalization)
  Sender: FDA-Public Use
  Company Number: US-JNJFOC-20110207726

PATIENT
  Sex: Male
  Weight: 87.1 kg

DRUGS (3)
  1. VELCADE [Suspect]
     Indication: PRODUCT USED FOR UNKNOWN INDICATION
     Route: 065
  2. CYTOXAN [Suspect]
     Indication: PRODUCT USED FOR UNKNOWN INDICATION
     Route: 065
  3. DOXIL [Suspect]
     Indication: MULTIPLE MYELOMA
     Route: 042

REACTIONS (8)
  - SYNCOPE [None]
  - VOMITING [None]
  - ASTHENIA [None]
  - NAUSEA [None]
  - DIARRHOEA [None]
  - ATELECTASIS [None]
  - DYSPNOEA [None]
  - PALMAR-PLANTAR ERYTHRODYSAESTHESIA SYNDROME [None]
